FAERS Safety Report 9284390 (Version 1)
Quarter: 2013Q2

REPORT INFORMATION
  Report Type: Spontaneous
  Country: US (occurrence: US)
  Receive Date: 20130510
  Receipt Date: 20130510
  Transmission Date: 20140414
  Serious: No
  Sender: FDA-Public Use
  Company Number: US-009507513-1305USA003073

PATIENT
  Age: 26 Year
  Sex: Female
  Weight: 54.42 kg

DRUGS (1)
  1. NUVARING [Suspect]
     Dosage: 1 RING FOR 3 WEEKS THEN A WEEK FREE BREAK
     Route: 067
     Dates: start: 200805

REACTIONS (1)
  - Inappropriate schedule of drug administration [Unknown]
